FAERS Safety Report 23786476 (Version 8)
Quarter: 2024Q2

REPORT INFORMATION
  Report Type: Spontaneous
  Country: US (occurrence: US)
  Receive Date: 20240426
  Receipt Date: 20240619
  Transmission Date: 20240715
  Serious: Yes (Other)
  Sender: FDA-Public Use
  Company Number: US-GSKCCFUS-Case-01991604_AE-110567

PATIENT

DRUGS (3)
  1. ADVAIR HFA [Suspect]
     Active Substance: FLUTICASONE PROPIONATE\SALMETEROL XINAFOATE
     Indication: Product used for unknown indication
     Dosage: UNK,230/21 MCG
     Route: 055
  2. VENTOLIN HFA [Suspect]
     Active Substance: ALBUTEROL SULFATE
     Indication: Product used for unknown indication
     Dosage: 18 G
     Route: 055
  3. DUONEB [Concomitant]
     Active Substance: ALBUTEROL SULFATE\IPRATROPIUM BROMIDE
     Indication: Product used for unknown indication
     Dosage: UNK

REACTIONS (6)
  - Choking [Unknown]
  - COVID-19 [Not Recovered/Not Resolved]
  - Dyspnoea [Unknown]
  - Wrong technique in device usage process [Unknown]
  - Drug ineffective [Unknown]
  - Product complaint [Unknown]

NARRATIVE: CASE EVENT DATE: 20240418
